FAERS Safety Report 10167400 (Version 15)
Quarter: 2015Q2

REPORT INFORMATION
  Report Type: Report from Study
  Country: US (occurrence: US)
  Receive Date: 20140512
  Receipt Date: 20150421
  Transmission Date: 20150821
  Serious: Yes (Hospitalization, Other)
  Sender: FDA-Public Use
  Company Number: US-SA-2014SA057799

PATIENT
  Age: 44 Year
  Sex: Female

DRUGS (6)
  1. VERAPAMIL [Concomitant]
     Active Substance: VERAPAMIL HYDROCHLORIDE
  2. AUBAGIO [Suspect]
     Active Substance: TERIFLUNOMIDE
     Indication: RELAPSING-REMITTING MULTIPLE SCLEROSIS
     Route: 048
     Dates: end: 20150107
  3. AUBAGIO [Suspect]
     Active Substance: TERIFLUNOMIDE
     Indication: RELAPSING-REMITTING MULTIPLE SCLEROSIS
     Route: 048
  4. COUMADIN [Concomitant]
     Active Substance: WARFARIN SODIUM
     Indication: PULMONARY EMBOLISM
  5. AUBAGIO [Suspect]
     Active Substance: TERIFLUNOMIDE
     Indication: RELAPSING-REMITTING MULTIPLE SCLEROSIS
     Route: 048
     Dates: start: 20140319, end: 20140912
  6. AUBAGIO [Suspect]
     Active Substance: TERIFLUNOMIDE
     Indication: RELAPSING-REMITTING MULTIPLE SCLEROSIS
     Route: 048

REACTIONS (31)
  - Urinary incontinence [Unknown]
  - Muscle twitching [Unknown]
  - Multiple sclerosis relapse [Unknown]
  - Fall [Unknown]
  - Dysarthria [Not Recovered/Not Resolved]
  - Alopecia [Recovering/Resolving]
  - Embolism [Unknown]
  - Transient ischaemic attack [Unknown]
  - Contusion [Unknown]
  - Unevaluable event [Unknown]
  - Bruxism [Not Recovered/Not Resolved]
  - Drug dose omission [Unknown]
  - Staring [Unknown]
  - Dysphemia [Unknown]
  - Migraine [Unknown]
  - Presyncope [Unknown]
  - Tic [Unknown]
  - Anxiety [Unknown]
  - Syncope [Unknown]
  - Eye disorder [Unknown]
  - Malaise [Unknown]
  - Limb discomfort [Unknown]
  - Visual impairment [Unknown]
  - Hemiparesis [Unknown]
  - Memory impairment [Unknown]
  - Dyskinesia [Not Recovered/Not Resolved]
  - Withdrawal syndrome [Unknown]
  - Neuropathy peripheral [Unknown]
  - Seizure [Unknown]
  - Periorbital contusion [Unknown]
  - Lip disorder [Not Recovered/Not Resolved]

NARRATIVE: CASE EVENT DATE: 2014
